FAERS Safety Report 18182825 (Version 4)
Quarter: 2020Q3

REPORT INFORMATION
  Report Type: Report from Study
  Country: None (occurrence: US)
  Receive Date: 20200822
  Receipt Date: 20200929
  Transmission Date: 20201103
  Serious: Yes (Other)
  Sender: FDA-Public Use
  Company Number: US-ABBVIE-20K-163-3529461-00

PATIENT
  Age: 67 Year
  Sex: Female
  Weight: 80.36 kg

DRUGS (6)
  1. HUMIRA [Suspect]
     Active Substance: ADALIMUMAB
     Indication: PSORIATIC ARTHROPATHY
     Route: 058
     Dates: start: 2018, end: 202006
  2. PREDNISONE. [Concomitant]
     Active Substance: PREDNISONE
     Indication: PRODUCT USED FOR UNKNOWN INDICATION
  3. SIMVASTATIN. [Concomitant]
     Active Substance: SIMVASTATIN
     Indication: PRODUCT USED FOR UNKNOWN INDICATION
  4. IRON [Concomitant]
     Active Substance: IRON
     Indication: PRODUCT USED FOR UNKNOWN INDICATION
  5. DOXYCYCLINE. [Concomitant]
     Active Substance: DOXYCYCLINE
     Indication: PRODUCT USED FOR UNKNOWN INDICATION
  6. HUMIRA [Suspect]
     Active Substance: ADALIMUMAB
     Indication: PSORIASIS
     Route: 058
     Dates: start: 20200726

REACTIONS (14)
  - Device issue [Recovered/Resolved]
  - Fall [Recovering/Resolving]
  - Injection site bruising [Recovering/Resolving]
  - Musculoskeletal disorder [Recovering/Resolving]
  - Arthritis [Unknown]
  - Incorrect dose administered [Recovered/Resolved]
  - Injection site injury [Recovering/Resolving]
  - Blood cholesterol increased [Not Recovered/Not Resolved]
  - Device issue [Recovered/Resolved]
  - Erythema [Unknown]
  - Spinal stenosis [Not Recovered/Not Resolved]
  - Contusion [Recovering/Resolving]
  - Anaemia [Not Recovered/Not Resolved]
  - Peripheral swelling [Unknown]

NARRATIVE: CASE EVENT DATE: 2020
